FAERS Safety Report 4487846-9 (Version None)
Quarter: 2004Q4

REPORT INFORMATION
  Report Type: 
  Country: None (occurrence: None)
  Receive Date: 20041027
  Receipt Date: 20041027
  Transmission Date: 20050328
  Serious: Yes (Hospitalization)
  Sender: FDA-Public Use
  Company Number: None

PATIENT
  Age: 80 Year
  Sex: Male
  Weight: 86.1834 kg

DRUGS (2)
  1. HYDROCHLOROTHIAZIDE [Suspect]
     Dosage: 25 MG PO QD
     Route: 048
  2. FUROSEMIDE [Suspect]
     Dosage: 20 MG PO BID
     Route: 048

REACTIONS (6)
  - ASTHENIA [None]
  - DIZZINESS [None]
  - DYSPNOEA [None]
  - HYPOTENSION [None]
  - HYPOVOLAEMIA [None]
  - ORTHOSTATIC HYPOTENSION [None]
